FAERS Safety Report 14094027 (Version 5)
Quarter: 2018Q2

REPORT INFORMATION
  Report Type: Spontaneous
  Country: JP (occurrence: JP)
  Receive Date: 20171016
  Receipt Date: 20180522
  Transmission Date: 20180711
  Serious: Yes (Other)
  Sender: FDA-Public Use
  Company Number: JP-PFIZER INC-2017438841

PATIENT
  Age: 79 Year
  Sex: Male

DRUGS (6)
  1. CARBOPLATIN. [Suspect]
     Active Substance: CARBOPLATIN
     Indication: NEOPLASM MALIGNANT
     Dosage: 5 MG/ML, CYCLIC  (5 MG/ML/MIN 1?H INTRAVENOUS INFUSION ON DAY 1)
     Route: 042
     Dates: start: 201411
  2. ACETYLSALICYLIC ACID [Concomitant]
     Active Substance: ASPIRIN
     Indication: MYOCARDIAL INFARCTION
     Dosage: 100 MG, DAILY
  3. TICLOPIDINE HYDROCHLORIDE. [Concomitant]
     Active Substance: TICLOPIDINE HYDROCHLORIDE
     Indication: MYOCARDIAL INFARCTION
     Dosage: 100 MG, DAILY
  4. CETUXIMAB. [Suspect]
     Active Substance: CETUXIMAB
     Indication: NEOPLASM MALIGNANT
     Dosage: 400 MG/M2, CYCLIC  (INITIAL DOSE)
     Dates: start: 201411
  5. CETUXIMAB. [Suspect]
     Active Substance: CETUXIMAB
     Dosage: 250 MG/M2, CYCLIC (SUBSEQUENT WEEKLY DOSES)
     Dates: start: 201411
  6. FLUOROURACIL. [Suspect]
     Active Substance: FLUOROURACIL
     Indication: NEOPLASM MALIGNANT
     Dosage: 1000 MG/M2, DAILY FOR 4 DAYS
     Dates: start: 201411

REACTIONS (1)
  - Cardiac ventricular thrombosis [Recovered/Resolved]
